FAERS Safety Report 11392467 (Version 2)
Quarter: 2015Q4

REPORT INFORMATION
  Report Type: Report from Study
  Country: FR (occurrence: FR)
  Receive Date: 20150818
  Receipt Date: 20151127
  Transmission Date: 20160304
  Serious: Yes (Hospitalization)
  Sender: FDA-Public Use
  Company Number: PHHY2013FR054734

PATIENT
  Age: 56 Year
  Sex: Female
  Weight: 66 kg

DRUGS (20)
  1. OFLOCET [Concomitant]
     Active Substance: OFLOXACIN
     Indication: INFECTION
     Dosage: 200 MG, BID
     Route: 065
     Dates: start: 20140404, end: 20140417
  2. CERTICAN [Suspect]
     Active Substance: EVEROLIMUS
     Indication: IMMUNOSUPPRESSANT DRUG THERAPY
  3. NEORAL [Suspect]
     Active Substance: CYCLOSPORINE
     Indication: IMMUNOSUPPRESSANT DRUG THERAPY
     Dosage: UNK
     Route: 048
     Dates: start: 20141021, end: 20141212
  4. ROCEPHINE [Concomitant]
     Active Substance: CEFTRIAXONE SODIUM
     Indication: PYELONEPHRITIS
     Dosage: 1 G, UNK
     Route: 065
     Dates: start: 20120515, end: 20120530
  5. TIENAM [Concomitant]
     Active Substance: CILASTATIN SODIUM\IMIPENEM
     Indication: INFECTION
     Dosage: 1 G, TID
     Route: 065
     Dates: start: 20140303, end: 20140313
  6. INDOCOLLYRE [Concomitant]
     Active Substance: INDOMETHACIN
     Indication: EYE OPERATION
     Dosage: 1 DRP, TID
     Route: 065
     Dates: start: 20130205, end: 20130306
  7. INDOCOLLYRE [Concomitant]
     Active Substance: INDOMETHACIN
     Dosage: 1 DRP, TID
     Route: 065
     Dates: start: 20130402, end: 20130502
  8. CERTICAN [Suspect]
     Active Substance: EVEROLIMUS
     Indication: RENAL TRANSPLANT
     Dosage: 1 MG, BID
     Route: 048
     Dates: start: 20120727
  9. MYCOPHENOLIC ACID. [Suspect]
     Active Substance: MYCOPHENOLIC ACID
     Indication: IMMUNOSUPPRESSANT DRUG THERAPY
     Dosage: 720 MG, BID
     Route: 048
     Dates: start: 20110911
  10. CORTANCYL [Suspect]
     Active Substance: PREDNISONE
     Indication: IMMUNOSUPPRESSANT DRUG THERAPY
     Dosage: UNK
     Route: 048
     Dates: start: 20120414
  11. AUGMENTIN [Concomitant]
     Active Substance: AMOXICILLIN\CLAVULANATE POTASSIUM
     Indication: INFECTION
     Dosage: 1 G, TID
     Route: 065
     Dates: start: 20140604, end: 20140622
  12. MYCOPHENOLIC ACID. [Suspect]
     Active Substance: MYCOPHENOLIC ACID
     Indication: RENAL TRANSPLANT
     Dosage: 720 MG, BID
     Route: 048
     Dates: start: 20110416
  13. NEORAL [Suspect]
     Active Substance: CYCLOSPORINE
     Indication: RENAL TRANSPLANT
     Dosage: UNK
     Route: 048
     Dates: start: 20110611, end: 20121017
  14. GENTAMYCINE [Concomitant]
     Active Substance: GENTAMICIN
     Indication: PYELONEPHRITIS
     Dosage: 320 MG, UNK
     Route: 065
     Dates: start: 20120515, end: 20120530
  15. CLAMOXYL//AMOXICILLIN [Concomitant]
     Active Substance: AMOXICILLIN
     Indication: PYELONEPHRITIS
     Dosage: 1 G, TID
     Route: 048
     Dates: start: 20121122, end: 20121206
  16. ROCEPHINE [Concomitant]
     Active Substance: CEFTRIAXONE SODIUM
     Dosage: 1 G, UNK
     Route: 042
     Dates: start: 20121119, end: 20121122
  17. ROCEPHINE [Concomitant]
     Active Substance: CEFTRIAXONE SODIUM
     Dosage: 1 UNK, UNK
     Route: 065
     Dates: start: 20140204, end: 20140205
  18. CHIBRO CADRON [Concomitant]
     Active Substance: DEXAMETHASONE SODIUM PHOSPHATE\NEOMYCIN SULFATE
     Dosage: 1 DRP, QID
     Route: 065
     Dates: start: 20130402, end: 20130502
  19. CHIBRO CADRON [Concomitant]
     Active Substance: DEXAMETHASONE SODIUM PHOSPHATE\NEOMYCIN SULFATE
     Indication: EYE OPERATION
     Dosage: 1 DF, 6QD
     Route: 065
     Dates: start: 20130205, end: 20130306
  20. CLAMOXYL//AMOXICILLIN [Concomitant]
     Active Substance: AMOXICILLIN
     Dosage: 1 G, TID
     Route: 065
     Dates: start: 20140209, end: 20140219

REACTIONS (10)
  - Acute kidney injury [Recovered/Resolved]
  - Escherichia pyelonephritis [Recovered/Resolved]
  - Pyrexia [Recovered/Resolved]
  - Escherichia pyelonephritis [Recovered/Resolved]
  - Papilloedema [Recovered/Resolved]
  - Pain [Recovered/Resolved]
  - Pneumonia klebsiella [Recovered/Resolved]
  - Escherichia pyelonephritis [Recovered/Resolved]
  - Bacterial pyelonephritis [Recovered/Resolved]
  - Escherichia pyelonephritis [Recovered/Resolved]

NARRATIVE: CASE EVENT DATE: 20120608
